FAERS Safety Report 22208543 (Version 1)
Quarter: 2023Q2

REPORT INFORMATION
  Report Type: Spontaneous
  Country: IN (occurrence: IN)
  Receive Date: 20230413
  Receipt Date: 20230413
  Transmission Date: 20230721
  Serious: Yes (Hospitalization, Other)
  Sender: FDA-Public Use
  Company Number: IN-MLMSERVICE-20230403-4202106-1

PATIENT
  Age: 31 Year
  Sex: Male

DRUGS (3)
  1. IBUPROFEN [Suspect]
     Active Substance: IBUPROFEN
     Indication: Back pain
     Dosage: 400 MG, INFREQUENTLY FOR THE PAST 1 MONTH
     Route: 048
  2. TOCOPHEROL [Suspect]
     Active Substance: TOCOPHEROL
     Indication: Dry skin
     Dosage: 400 MG, Q12 H
     Route: 065
  3. TOCOPHEROL [Suspect]
     Active Substance: TOCOPHEROL
     Indication: Alopecia

REACTIONS (6)
  - Bleeding time prolonged [Recovered/Resolved]
  - Anaemia [Recovered/Resolved]
  - Gingival bleeding [Recovered/Resolved]
  - Contusion [Recovered/Resolved]
  - Gastrointestinal haemorrhage [Recovered/Resolved]
  - Gastrointestinal erosion [Recovered/Resolved]
